FAERS Safety Report 21332735 (Version 1)
Quarter: 2022Q3

REPORT INFORMATION
  Report Type: Spontaneous
  Country: US (occurrence: None)
  Receive Date: 20220913
  Receipt Date: 20220913
  Transmission Date: 20221027
  Serious: Yes (Hospitalization)
  Sender: FDA-Public Use
  Company Number: None

PATIENT
  Age: 65 Year
  Sex: Male

DRUGS (11)
  1. DROXIDOPA [Suspect]
     Active Substance: DROXIDOPA
     Indication: Autonomic nervous system imbalance
     Dosage: FREQUENCY : 3 TIMES A DAY;?
     Route: 048
     Dates: start: 20220805, end: 20220910
  2. GABAPENTIN [Suspect]
     Active Substance: GABAPENTIN
     Dosage: FREQUENCY : TWICE A DAY;?
     Route: 048
     Dates: start: 20220828, end: 20220910
  3. VENCLEXTA [Concomitant]
     Active Substance: VENETOCLAX
  4. DECITABINE [Concomitant]
     Active Substance: DECITABINE
  5. BUPROPION [Concomitant]
     Active Substance: BUPROPION
  6. DULOXETINE [Concomitant]
     Active Substance: DULOXETINE
  7. FINASTERIDE [Concomitant]
     Active Substance: FINASTERIDE
  8. OXYCODONE [Concomitant]
     Active Substance: OXYCODONE
  9. ROSUVASTATIN [Concomitant]
     Active Substance: ROSUVASTATIN
  10. VALACYCLOVIR [Concomitant]
     Active Substance: VALACYCLOVIR HYDROCHLORIDE
  11. POSACONAZOLE [Concomitant]
     Active Substance: POSACONAZOLE

REACTIONS (5)
  - Hallucination, visual [None]
  - Hallucination, auditory [None]
  - Abnormal dreams [None]
  - Derealisation [None]
  - Disinhibition [None]

NARRATIVE: CASE EVENT DATE: 20220909
